FAERS Safety Report 5132264-3 (Version None)
Quarter: 2006Q4

REPORT INFORMATION
  Report Type: 
  Country: None (occurrence: None)
  Receive Date: 20061017
  Receipt Date: 20061005
  Transmission Date: 20070319
  Serious: Yes (Hospitalization)
  Sender: FDA-Public Use
  Company Number: 2006S1000204

PATIENT
  Age: 58 Year
  Sex: Male
  Weight: 90.7194 kg

DRUGS (12)
  1. SORIATANE [Suspect]
     Indication: PSORIASIS
     Dosage: 25 MG QD PO ; 10 MG QD PO
     Route: 048
     Dates: start: 20060403, end: 20060101
  2. SORIATANE [Suspect]
     Indication: PSORIASIS
     Dosage: 25 MG QD PO ; 10 MG QD PO
     Route: 048
     Dates: start: 20060322, end: 20060402
  3. CLOBEX [Concomitant]
  4. ATENOLOL [Concomitant]
  5. NPH INSULIN [Concomitant]
  6. ASPIRIN [Concomitant]
  7. METHOTREXATE SODIUM [Concomitant]
  8. LOPID [Concomitant]
  9. LASIX [Concomitant]
  10. ZYRTEC [Concomitant]
  11. CARDURA [Concomitant]
  12. FOLIC ACID [Concomitant]

REACTIONS (12)
  - CARDIAC FAILURE CONGESTIVE [None]
  - DIARRHOEA [None]
  - DYSPNOEA PAROXYSMAL NOCTURNAL [None]
  - FLUID OVERLOAD [None]
  - HYPOKALAEMIA [None]
  - NAUSEA [None]
  - ORTHOPNOEA [None]
  - PRODUCTIVE COUGH [None]
  - RENAL FAILURE [None]
  - VASCULAR OPERATION [None]
  - VOMITING [None]
  - WHEEZING [None]
